FAERS Safety Report 26156684 (Version 1)
Quarter: 2025Q4

REPORT INFORMATION
  Report Type: Spontaneous
  Country: US (occurrence: US)
  Receive Date: 20251215
  Receipt Date: 20251215
  Transmission Date: 20260118
  Serious: No
  Sender: BIOGEN
  Company Number: US-BIOGEN-2094383

PATIENT
  Sex: Female

DRUGS (1)
  1. ZURZUVAE [Suspect]
     Active Substance: ZURANOLONE
     Indication: Perinatal depression
     Dosage: PATIENT?S 2ND RX WAS WRITTEN ON 11/26 FOR 40MG DOSE, BUT THE INITIAL RX WAS WRITTEN PRIOR TO 11/26 FOR THE STARTING DOSE OF 50MG/DAY

REACTIONS (3)
  - Somnolence [Unknown]
  - Feeling drunk [Unknown]
  - Fatigue [Unknown]
